FAERS Safety Report 7870855-7 (Version None)
Quarter: 2011Q4

REPORT INFORMATION
  Report Type: 
  Country: None (occurrence: None)
  Receive Date: 20111029
  Receipt Date: 20110217
  Transmission Date: 20120403
  Serious: No
  Sender: FDA-Public Use
  Company Number: US-AMGEN-USASP2011009510

PATIENT
  Age: 80 Year
  Sex: Female

DRUGS (2)
  1. ENBREL [Suspect]
     Indication: PSORIASIS
  2. ENBREL [Suspect]
     Indication: PSORIATIC ARTHROPATHY
     Dosage: 50 MG, QWK
     Dates: start: 20060101, end: 20110209

REACTIONS (6)
  - MALAISE [None]
  - RHINORRHOEA [None]
  - COUGH [None]
  - SNEEZING [None]
  - NASOPHARYNGITIS [None]
  - PYREXIA [None]
